FAERS Safety Report 5710437-6 (Version None)
Quarter: 2008Q2

REPORT INFORMATION
  Report Type: 
  Country: None (occurrence: None)
  Receive Date: 20080418
  Receipt Date: 20080408
  Transmission Date: 20081010
  Serious: Yes (Other)
  Sender: FDA-Public Use
  Company Number: US-PFIZER INC-2008032626

PATIENT
  Sex: Female
  Weight: 70.454 kg

DRUGS (5)
  1. CHANTIX [Suspect]
     Indication: SMOKING CESSATION THERAPY
  2. XANAX [Concomitant]
  3. IBUPROFEN [Concomitant]
     Indication: PAIN
  4. INSULIN [Concomitant]
  5. SOMA [Concomitant]

REACTIONS (1)
  - BLOOD GLUCOSE INCREASED [None]
